FAERS Safety Report 5194797-3 (Version None)
Quarter: 2006Q4

REPORT INFORMATION
  Report Type: 
  Country: None (occurrence: None)
  Receive Date: 20061229
  Receipt Date: 20061204
  Transmission Date: 20070319
  Serious: Yes (Disabling)
  Sender: FDA-Public Use
  Company Number: DK-ROCHE-473744

PATIENT
  Age: 67 Year
  Sex: Female
  Weight: 62 kg

DRUGS (1)
  1. BONIVA [Suspect]
     Indication: OSTEOPOROSIS
     Route: 048
     Dates: start: 20061102, end: 20061103

REACTIONS (2)
  - PRURITUS [None]
  - RASH [None]
